FAERS Safety Report 10019670 (Version 1)
Quarter: 2014Q1

REPORT INFORMATION
  Report Type: Spontaneous
  Country: FR (occurrence: FR)
  Receive Date: 20140318
  Receipt Date: 20140318
  Transmission Date: 20141002
  Serious: Yes (Hospitalization)
  Sender: FDA-Public Use
  Company Number: PHHY2014FR031168

PATIENT
  Age: 14 Month
  Sex: Male
  Weight: 2.83 kg

DRUGS (2)
  1. CEFTRIAXONE SANDOZ [Suspect]
     Indication: PYELONEPHRITIS ACUTE
     Route: 042
     Dates: start: 20080822, end: 20080824
  2. DOLIRANE [Concomitant]

REACTIONS (1)
  - Agitation [Recovered/Resolved]
